FAERS Safety Report 9694227 (Version 1)
Quarter: 2013Q4

REPORT INFORMATION
  Report Type: Spontaneous
  Country: US (occurrence: US)
  Receive Date: 20131118
  Receipt Date: 20131118
  Transmission Date: 20140711
  Serious: No
  Sender: FDA-Public Use
  Company Number: US-PFIZER INC-2013322311

PATIENT
  Age: 47 Year
  Sex: Female
  Weight: 117 kg

DRUGS (9)
  1. MORPHINE SULFATE [Suspect]
  2. REGLAN [Suspect]
  3. CODEINE [Suspect]
  4. LEVAQUIN [Suspect]
  5. MOBIC [Suspect]
  6. MEFENAMIC ACID [Suspect]
  7. VICODIN [Suspect]
  8. DILAUDID [Suspect]
  9. MACROBID [Suspect]

REACTIONS (1)
  - Drug hypersensitivity [Unknown]
